FAERS Safety Report 7183320-X (Version None)
Quarter: 2010Q4

REPORT INFORMATION
  Report Type: 
  Country: None (occurrence: None)
  Receive Date: 20101222
  Receipt Date: 20101015
  Transmission Date: 20110411
  Serious: No
  Sender: FDA-Public Use
  Company Number: A0887096A

PATIENT
  Sex: Male

DRUGS (3)
  1. FLONASE [Suspect]
     Indication: RHINITIS
     Dosage: 2SPR PER DAY
     Route: 045
     Dates: start: 20071101, end: 20090501
  2. ANTIDEPRESSANTS [Concomitant]
  3. SUDAFED 12 HOUR [Concomitant]

REACTIONS (1)
  - DRUG INEFFECTIVE [None]
